FAERS Safety Report 16437990 (Version 1)
Quarter: 2019Q2

REPORT INFORMATION
  Report Type: Spontaneous
  Country: DE (occurrence: DE)
  Receive Date: 20190617
  Receipt Date: 20190617
  Transmission Date: 20190711
  Serious: Yes (Hospitalization, Other)
  Sender: FDA-Public Use
  Company Number: DE-TEVA-2019-DE-1063269

PATIENT
  Age: 20 Year
  Sex: Male
  Weight: 63 kg

DRUGS (1)
  1. MOXIFLOXACIN PUREN 400 MG FILMTABLETTEN [Suspect]
     Active Substance: MOXIFLOXACIN
     Indication: SINUSITIS
     Dosage: 2000 MILLIGRAM DAILY; 5X400 MG
     Route: 048
     Dates: start: 20181219, end: 20181223

REACTIONS (44)
  - Decreased appetite [Recovered/Resolved]
  - Initial insomnia [Recovered/Resolved]
  - Muscle spasms [Not Recovered/Not Resolved]
  - Muscle tightness [Recovering/Resolving]
  - Anxiety [Recovered/Resolved]
  - Eye pain [Recovering/Resolving]
  - Accommodation disorder [Recovered/Resolved]
  - Disturbance in attention [Not Recovered/Not Resolved]
  - Dyspnoea [Recovering/Resolving]
  - Arthralgia [Recovering/Resolving]
  - Hypoaesthesia [Not Recovered/Not Resolved]
  - Sensory disturbance [Recovering/Resolving]
  - Neck pain [Recovered/Resolved]
  - Arrhythmia [Recovered/Resolved]
  - Stress [Not Recovered/Not Resolved]
  - Back pain [Recovering/Resolving]
  - Vision blurred [Recovering/Resolving]
  - Balance disorder [Recovering/Resolving]
  - Musculoskeletal stiffness [Recovering/Resolving]
  - Cardiovascular disorder [Recovered/Resolved]
  - Muscle tightness [Recovered/Resolved]
  - Weight bearing difficulty [Not Recovered/Not Resolved]
  - Depressed mood [Not Recovered/Not Resolved]
  - Paraesthesia [Recovered/Resolved]
  - Chest pain [Recovered/Resolved]
  - Dizziness [Recovered/Resolved]
  - Hypoaesthesia oral [Not Recovered/Not Resolved]
  - Sleep apnoea syndrome [Recovered/Resolved]
  - Sensory overload [Recovering/Resolving]
  - Musculoskeletal stiffness [Recovered/Resolved]
  - Photophobia [Recovering/Resolving]
  - Headache [Recovered/Resolved]
  - Muscular weakness [Recovering/Resolving]
  - Tendon pain [Recovering/Resolving]
  - Hypoaesthesia [Recovered/Resolved]
  - Weight decreased [Recovered/Resolved]
  - Movement disorder [Recovering/Resolving]
  - Pain [Recovered/Resolved]
  - Tendon discomfort [Recovering/Resolving]
  - Blood glucose fluctuation [Recovered/Resolved]
  - Abdominal pain [Recovered/Resolved]
  - Pain [Recovered/Resolved]
  - Palpitations [Not Recovered/Not Resolved]
  - Asthenia [Not Recovered/Not Resolved]

NARRATIVE: CASE EVENT DATE: 201812
